FAERS Safety Report 8789550 (Version 1)
Quarter: 2012Q4

REPORT INFORMATION
  Report Type: Spontaneous
  Country: US (occurrence: None)
  Receive Date: 20120905
  Receipt Date: 20120905
  Transmission Date: 20130627
  Serious: Yes (Hospitalization, Other)
  Sender: FDA-Public Use
  Company Number: FK201202529

PATIENT
  Age: 61 Year
  Sex: Male

DRUGS (4)
  1. PAMIDRONATE DISODIUM [Suspect]
     Indication: MULTIPLE MYELOMA
     Dosage: 90 mg, D1, Intravenous (not otherwise specified)
     Route: 042
     Dates: start: 20110307, end: 20110418
  2. ADRIAMYCIN [Suspect]
     Indication: MULTIPLE MYELOMA
     Dosage: 20 mg, D1 AND D8, Intravenous (not otherwise specified)
     Route: 042
     Dates: start: 20110307, end: 20110425
  3. VELCADE [Suspect]
     Indication: MULTIPLE MYELOMA
     Dosage: 3.5 mg, d1,4,8,11 Q3WEEKS, Intravenous (not otherwise specified)
     Route: 042
     Dates: start: 20110307, end: 20110428
  4. DOXORUBICIN (DOXORUBICIN) [Concomitant]

REACTIONS (4)
  - Deep vein thrombosis [None]
  - Hyperglycaemia [None]
  - Renal failure acute [None]
  - Subclavian vein thrombosis [None]
